FAERS Safety Report 13830270 (Version 1)
Quarter: 2017Q3

REPORT INFORMATION
  Report Type: Spontaneous
  Country: US (occurrence: US)
  Receive Date: 20170803
  Receipt Date: 20170803
  Transmission Date: 20171127
  Serious: No
  Sender: FDA-Public Use
  Company Number: US-SA-2017SA120464

PATIENT
  Age: 63 Year
  Sex: Female

DRUGS (6)
  1. ALIROCUMAB PREFILLED PEN [Concomitant]
     Active Substance: ALIROCUMAB
     Indication: BLOOD CHOLESTEROL
     Dates: start: 2016, end: 2017
  2. PRALUENT [Suspect]
     Active Substance: ALIROCUMAB
     Indication: BLOOD CHOLESTEROL
     Route: 058
     Dates: start: 2016, end: 2017
  3. BABY ASPIRIN [Suspect]
     Active Substance: ASPIRIN
     Indication: THROMBOSIS PROPHYLAXIS
     Route: 065
     Dates: start: 2016
  4. ALIROCUMAB PREFILLED PEN [Concomitant]
     Active Substance: ALIROCUMAB
     Indication: BLOOD CHOLESTEROL
     Dates: start: 2017, end: 2017
  5. PRALUENT [Suspect]
     Active Substance: ALIROCUMAB
     Indication: BLOOD CHOLESTEROL
     Route: 058
     Dates: start: 2017, end: 2017
  6. EFFIENT [Suspect]
     Active Substance: PRASUGREL HYDROCHLORIDE
     Indication: THROMBOSIS PROPHYLAXIS
     Route: 065
     Dates: start: 2016, end: 201702

REACTIONS (11)
  - Constipation [Unknown]
  - Cough [Recovered/Resolved]
  - Weight decreased [Unknown]
  - Headache [Recovered/Resolved]
  - Contusion [Unknown]
  - Alopecia [Not Recovered/Not Resolved]
  - Glycosylated haemoglobin increased [Unknown]
  - Muscle spasms [Unknown]
  - Blood glucose increased [Unknown]
  - Diarrhoea [Recovering/Resolving]
  - Rash macular [Not Recovered/Not Resolved]

NARRATIVE: CASE EVENT DATE: 2016
